FAERS Safety Report 12557069 (Version 2)
Quarter: 2016Q3

REPORT INFORMATION
  Report Type: Spontaneous
  Country: US (occurrence: US)
  Receive Date: 20160714
  Receipt Date: 20160729
  Transmission Date: 20161109
  Serious: Yes (Other)
  Sender: FDA-Public Use
  Company Number: US-AMGEN-USASP2016090286

PATIENT
  Age: 37 Year
  Sex: Female
  Weight: 53.52 kg

DRUGS (2)
  1. ENBREL [Suspect]
     Active Substance: ETANERCEPT
     Indication: ANKYLOSING SPONDYLITIS
     Dosage: 50 MG, QWK
     Route: 065
     Dates: start: 20160627
  2. ENBREL [Suspect]
     Active Substance: ETANERCEPT
     Indication: FIBROMYALGIA

REACTIONS (7)
  - Injection site rash [Recovered/Resolved]
  - Asthenia [Unknown]
  - Injection site erythema [Unknown]
  - Hyperhidrosis [Recovered/Resolved]
  - Skin hyperpigmentation [Unknown]
  - Dizziness [Unknown]
  - Injection site pruritus [Recovered/Resolved]

NARRATIVE: CASE EVENT DATE: 2016
